FAERS Safety Report 7636855-7 (Version None)
Quarter: 2011Q3

REPORT INFORMATION
  Report Type: 
  Country: None (occurrence: None)
  Receive Date: 20110722
  Receipt Date: 20110722
  Transmission Date: 20111222
  Serious: Yes (Hospitalization, Other)
  Sender: FDA-Public Use
  Company Number: None

PATIENT
  Sex: Female
  Weight: 48.9885 kg

DRUGS (1)
  1. HUMIRA [Suspect]
     Indication: CROHN'S DISEASE
     Dosage: 40 MG EVERY 2 WEEKS
     Dates: start: 20101001, end: 20110501

REACTIONS (8)
  - PAIN [None]
  - ANXIETY [None]
  - TOXICITY TO VARIOUS AGENTS [None]
  - TREMOR [None]
  - VERTIGO [None]
  - DYSPNOEA [None]
  - DEPRESSION [None]
  - ASTHENIA [None]
